FAERS Safety Report 12223473 (Version 1)
Quarter: 2016Q1

REPORT INFORMATION
  Report Type: Spontaneous
  Country: US (occurrence: US)
  Receive Date: 20160330
  Receipt Date: 20160330
  Transmission Date: 20160526
  Serious: No
  Sender: FDA-Public Use
  Company Number: ALCN2014US007036

PATIENT
  Sex: Female
  Weight: 39.46 kg

DRUGS (1)
  1. TRAVATAN Z [Suspect]
     Active Substance: TRAVOPROST
     Dosage: 1 GTT, QHS
     Route: 047

REACTIONS (9)
  - Weight decreased [Unknown]
  - Eye injury [Unknown]
  - Ocular hyperaemia [Recovered/Resolved]
  - Erythema [Recovered/Resolved]
  - Vision blurred [Unknown]
  - Dark circles under eyes [Recovered/Resolved]
  - Visual acuity reduced [Unknown]
  - Lacrimation increased [Recovered/Resolved]
  - Eye irritation [Recovered/Resolved]
